FAERS Safety Report 6619920-2 (Version None)
Quarter: 2010Q1

REPORT INFORMATION
  Report Type: 
  Country: None (occurrence: None)
  Receive Date: 20100304
  Receipt Date: 20100218
  Transmission Date: 20100710
  Serious: Yes (Hospitalization)
  Sender: FDA-Public Use
  Company Number: ALK_01181_2010

PATIENT
  Age: 29 Year
  Sex: Male
  Weight: 113.3993 kg

DRUGS (6)
  1. VIVITROL [Suspect]
     Indication: DRUG ABUSE
     Dosage: (INTRAMUSCULAR)
     Route: 030
     Dates: start: 20100214
  2. DEPAKOTE [Concomitant]
  3. AMARYL [Concomitant]
  4. LEVOTHYROXINE SODIUM [Concomitant]
  5. METFORMIN HYDROCHLORIDE [Concomitant]
  6. LANTUS [Concomitant]

REACTIONS (4)
  - ABDOMINAL PAIN [None]
  - LOSS OF CONSCIOUSNESS [None]
  - MALAISE [None]
  - PULSE ABSENT [None]
